FAERS Safety Report 9059699 (Version 1)
Quarter: 2013Q1

REPORT INFORMATION
  Report Type: Spontaneous
  Country: US (occurrence: None)
  Receive Date: 20130206
  Receipt Date: 20130206
  Transmission Date: 20140127
  Serious: Yes (Life-Threatening, Hospitalization)
  Sender: FDA-Public Use
  Company Number: None

PATIENT
  Age: 85 Year
  Sex: Male
  Weight: 85.9 kg

DRUGS (2)
  1. HEPARIN [Suspect]
     Indication: DEEP VEIN THROMBOSIS
     Route: 058
     Dates: start: 20130117, end: 20130118
  2. WARFARIN [Suspect]
     Dates: start: 20130117, end: 20130118

REACTIONS (3)
  - Haematoma [None]
  - Retroperitoneal haematoma [None]
  - Haemoglobin decreased [None]
